FAERS Safety Report 7158750-2 (Version None)
Quarter: 2010Q4

REPORT INFORMATION
  Report Type: 
  Country: None (occurrence: None)
  Receive Date: 20101214
  Receipt Date: 20101203
  Transmission Date: 20110411
  Serious: Yes (Hospitalization, Other)
  Sender: FDA-Public Use
  Company Number: US-JNJFOC-20100300466

PATIENT
  Sex: Female

DRUGS (4)
  1. SIMPONI [Suspect]
     Indication: PSORIATIC ARTHROPATHY
     Route: 058
  2. DIOVAN HCT [Concomitant]
     Dosage: DOSE: 160/25
  3. NORVASC [Concomitant]
  4. PREVACID [Concomitant]

REACTIONS (2)
  - BACTERAEMIA [None]
  - SEPTIC ARTHRITIS STAPHYLOCOCCAL [None]
